FAERS Safety Report 9258010 (Version 1)
Quarter: 2013Q2

REPORT INFORMATION
  Report Type: Spontaneous
  Country: US (occurrence: US)
  Receive Date: 20130426
  Receipt Date: 20130426
  Transmission Date: 20140414
  Serious: Yes (Congenital Anomaly)
  Sender: FDA-Public Use
  Company Number: US-009507513-99101215

PATIENT
  Age: 23 Year
  Sex: Female

DRUGS (5)
  1. SINGULAIR [Suspect]
     Indication: ASTHMA
     Dosage: 10 MG, QD
     Route: 048
  2. PROVENTIL [Suspect]
     Indication: ASTHMA
  3. SEREVENT [Suspect]
     Indication: ASTHMA
  4. INTAL [Concomitant]
  5. VITAMINS (UNSPECIFIED) [Concomitant]

REACTIONS (2)
  - Hand deformity [Not Recovered/Not Resolved]
  - Maternal exposure timing unspecified [Unknown]
